FAERS Safety Report 7831782-4 (Version None)
Quarter: 2011Q4

REPORT INFORMATION
  Report Type: 
  Country: None (occurrence: None)
  Receive Date: 20111021
  Receipt Date: 20111017
  Transmission Date: 20120403
  Serious: Yes (Other)
  Sender: FDA-Public Use
  Company Number: BR-PFIZER INC-2011249528

PATIENT
  Sex: Female

DRUGS (2)
  1. VARENICLINE TARTRATE [Suspect]
     Indication: SMOKING CESSATION THERAPY
     Route: 048
  2. VARENICLINE TARTRATE [Suspect]
     Dosage: UNK
     Dates: start: 20111014

REACTIONS (8)
  - OROPHARYNGEAL PAIN [None]
  - HAEMOPTYSIS [None]
  - SOMNOLENCE [None]
  - FATIGUE [None]
  - INFLUENZA LIKE ILLNESS [None]
  - HYPERHIDROSIS [None]
  - ABNORMAL SLEEP-RELATED EVENT [None]
  - EYE DISORDER [None]
